FAERS Safety Report 20946181 (Version 1)
Quarter: 2022Q2

REPORT INFORMATION
  Report Type: Spontaneous
  Country: US (occurrence: US)
  Receive Date: 20220610
  Receipt Date: 20220610
  Transmission Date: 20220721
  Serious: Yes (Hospitalization)
  Sender: FDA-Public Use
  Company Number: US-BRISTOL-MYERS SQUIBB COMPANY-2022-053344

PATIENT
  Age: 64 Year
  Sex: Male

DRUGS (4)
  1. REVLIMID [Suspect]
     Active Substance: LENALIDOMIDE
     Indication: Plasma cell myeloma
     Dosage: TAKE 1 CAPSULE BY MOUTH EVERY OTHER DAY
     Route: 048
     Dates: start: 20190416
  2. DILTIAZEM [Concomitant]
     Active Substance: DILTIAZEM
     Indication: Product used for unknown indication
  3. TRIAMT [Concomitant]
     Indication: Product used for unknown indication
     Dosage: 37.5-25
  4. TRIAMT [Concomitant]
     Dosage: 37.5-25

REACTIONS (1)
  - Hospitalisation [Unknown]
